FAERS Safety Report 12463932 (Version 1)
Quarter: 2016Q2

REPORT INFORMATION
  Report Type: Report from Study
  Country: IL (occurrence: IL)
  Receive Date: 20160614
  Receipt Date: 20160614
  Transmission Date: 20160815
  Serious: Yes (Other)
  Sender: FDA-Public Use
  Company Number: IL-VIIV HEALTHCARE LIMITED-IL2016GSK082301

PATIENT
  Age: 66 Year
  Sex: Male

DRUGS (11)
  1. EMTRICITABINE/TENOFOVIR DISOPROXIL FUMARATE [Suspect]
     Active Substance: EMTRICITABINE\TENOFOVIR DISOPROXIL
     Indication: HIV INFECTION
  2. VASODIP [Concomitant]
     Active Substance: LERCANIDIPINE HYDROCHLORIDE
  3. VIRAMUNE [Suspect]
     Active Substance: NEVIRAPINE
     Indication: HIV INFECTION
  4. AMBIEN [Concomitant]
     Active Substance: ZOLPIDEM TARTRATE
  5. ABACAVIR SULFATE + LAMIVUDINE [Suspect]
     Active Substance: ABACAVIR SULFATE\LAMIVUDINE
     Indication: HIV INFECTION
  6. PLAVIX [Concomitant]
     Active Substance: CLOPIDOGREL BISULFATE
  7. MIRO [Concomitant]
  8. ISENTRESS [Suspect]
     Active Substance: RALTEGRAVIR POTASSIUM
     Indication: HIV INFECTION
  9. CRESTOR [Concomitant]
     Active Substance: ROSUVASTATIN CALCIUM
  10. PREDNISONE. [Concomitant]
     Active Substance: PREDNISONE
  11. XARELTO [Concomitant]
     Active Substance: RIVAROXABAN

REACTIONS (4)
  - Diarrhoea [Unknown]
  - Osteoporotic fracture [Unknown]
  - Renal failure [Unknown]
  - Nephropathy toxic [Unknown]
